FAERS Safety Report 5841101-0 (Version None)
Quarter: 2008Q3

REPORT INFORMATION
  Report Type: 
  Country: None (occurrence: None)
  Receive Date: 20080811
  Receipt Date: 20080811
  Transmission Date: 20090109
  Serious: Yes (Other)
  Sender: FDA-Public Use
  Company Number: None

PATIENT
  Age: 46 Year
  Sex: Male
  Weight: 79.3795 kg

DRUGS (1)
  1. VIAGRA [Suspect]
     Indication: ERECTILE DYSFUNCTION
     Dosage: 1/2 PILL -50 MG- ONCE PER DAY PO
     Route: 048
     Dates: start: 20080505, end: 20080513

REACTIONS (3)
  - DYSPEPSIA [None]
  - INSOMNIA [None]
  - PANIC REACTION [None]
